FAERS Safety Report 14615086 (Version 1)
Quarter: 2018Q1

REPORT INFORMATION
  Report Type: Spontaneous
  Country: US (occurrence: US)
  Receive Date: 20180308
  Receipt Date: 20180308
  Transmission Date: 20180509
  Serious: Yes (Other)
  Sender: FDA-Public Use
  Company Number: US-AKORN PHARMACEUTICALS-2018AKN00290

PATIENT
  Age: 31 Year
  Sex: Female

DRUGS (2)
  1. HORMONE INTRAUTERINE DEVICE [Concomitant]
     Route: 065
  2. TRANEXAMIC ACID. [Suspect]
     Active Substance: TRANEXAMIC ACID
     Dosage: 1 G, ONCE
     Route: 042

REACTIONS (3)
  - Atrial thrombosis [Recovered/Resolved]
  - Renal infarct [Unknown]
  - Pulmonary embolism [Recovered/Resolved]
